FAERS Safety Report 18816134 (Version 1)
Quarter: 2021Q1

REPORT INFORMATION
  Report Type: Spontaneous
  Country: US (occurrence: US)
  Receive Date: 20210201
  Receipt Date: 20210201
  Transmission Date: 20210419
  Serious: No
  Sender: FDA-Public Use
  Company Number: None

PATIENT
  Age: 53 Year
  Sex: Male
  Weight: 84.82 kg

DRUGS (1)
  1. CASIRIVIMAB / IMDEVIMAB [Suspect]
     Active Substance: CASIRIVIMAB\IMDEVIMAB
     Route: 041

REACTIONS (3)
  - Feeling hot [None]
  - Infusion related reaction [None]
  - Paraesthesia ear [None]

NARRATIVE: CASE EVENT DATE: 20210130
